FAERS Safety Report 4820545-X (Version None)
Quarter: 2005Q4

REPORT INFORMATION
  Report Type: 
  Country: None (occurrence: None)
  Receive Date: 20051014
  Receipt Date: 20050629
  Transmission Date: 20060501
  Serious: No
  Sender: FDA-Public Use
  Company Number: 2005SP001670

PATIENT
  Age: 82 Year
  Sex: Male
  Weight: 75.7507 kg

DRUGS (9)
  1. LUNESTA [Suspect]
     Dosage: 2 MG;HS;ORAL
     Route: 048
     Dates: start: 20050524, end: 20050611
  2. DISALCID (1500 MG) [Suspect]
     Dosage: 1500 MG;BID;ORAL
     Route: 048
     Dates: start: 20050501, end: 20050601
  3. SIMVASTATIN [Concomitant]
  4. ASPIRIN [Concomitant]
  5. PLAVIX [Concomitant]
  6. PRILOSEC [Concomitant]
  7. VERELAN [Concomitant]
  8. VIAGRA [Concomitant]
  9. DISALCID [Concomitant]

REACTIONS (1)
  - DYSGEUSIA [None]
